FAERS Safety Report 15745186 (Version 1)
Quarter: 2018Q4

REPORT INFORMATION
  Report Type: Spontaneous
  Country: US (occurrence: US)
  Receive Date: 20181220
  Receipt Date: 20181220
  Transmission Date: 20190205
  Serious: No
  Sender: FDA-Public Use
  Company Number: US-ADAMAS PHARMA, LLC-2018ADA02419

PATIENT
  Age: 75 Year
  Sex: Female
  Weight: 87.98 kg

DRUGS (12)
  1. SYMMETREL [Concomitant]
     Active Substance: AMANTADINE HYDROCHLORIDE
     Dosage: 100 MG, 3X/DAY
     Route: 048
  2. TROSPIUM CHLORIDE. [Concomitant]
     Active Substance: TROSPIUM CHLORIDE
     Dosage: 60 MG, 1X/DAY
     Route: 048
  3. SYNTHROID [Concomitant]
     Active Substance: LEVOTHYROXINE SODIUM
     Dosage: 112 ?G, 1X/DAY
     Route: 048
  4. GOCOVRI [Suspect]
     Active Substance: AMANTADINE
     Indication: DYSKINESIA
     Dosage: 137 MG, 1X/DAY AT BEDTIME
     Route: 048
     Dates: start: 20180921, end: 20180923
  5. DETROL LA [Concomitant]
     Active Substance: TOLTERODINE TARTRATE
     Dosage: 4 MG, 1X/DAY
     Route: 048
  6. SINEMET [Concomitant]
     Active Substance: CARBIDOPA\LEVODOPA
     Dosage: 1.5 TABLETS, 4X/DAY
  7. MYRBETRIQ [Concomitant]
     Active Substance: MIRABEGRON
  8. HYDROCHLOROTHIAZIDE. [Concomitant]
     Active Substance: HYDROCHLOROTHIAZIDE
     Dosage: 12.5 MG, 1X/DAY
     Route: 048
  9. ZOCOR [Concomitant]
     Active Substance: SIMVASTATIN
     Dosage: 40 MG, 1X/DAY AT BEDTIME
     Route: 048
  10. COMTAN [Concomitant]
     Active Substance: ENTACAPONE
     Dosage: 200 MG, 4X/DAY
     Route: 048
  11. MIRABEGRON ER [Concomitant]
     Active Substance: MIRABEGRON
     Dosage: 25 MG
     Route: 048
  12. CARBIDOPA-LEVODOPA CR [Concomitant]
     Dosage: 1 TABLETS, 1X/DAY AT BEDTIME
     Route: 048

REACTIONS (1)
  - Dyskinesia [Unknown]

NARRATIVE: CASE EVENT DATE: 20180922
